FAERS Safety Report 25108381 (Version 1)
Quarter: 2025Q1

REPORT INFORMATION
  Report Type: Report from Study
  Country: US (occurrence: US)
  Receive Date: 20250322
  Receipt Date: 20250322
  Transmission Date: 20250409
  Serious: Yes (Other)
  Sender: ABBVIE
  Company Number: US-ABBVIE-6183308

PATIENT
  Age: 55 Year
  Sex: Female

DRUGS (1)
  1. SKYRIZI [Suspect]
     Active Substance: RISANKIZUMAB-RZAA
     Indication: Product used for unknown indication
     Route: 041
     Dates: start: 20241227

REACTIONS (2)
  - Small intestine operation [Recovering/Resolving]
  - Colon operation [Recovering/Resolving]

NARRATIVE: CASE EVENT DATE: 20250226
